FAERS Safety Report 18891648 (Version 1)
Quarter: 2021Q1

REPORT INFORMATION
  Report Type: Spontaneous
  Country: NL (occurrence: NL)
  Receive Date: 20210215
  Receipt Date: 20210215
  Transmission Date: 20210420
  Serious: Yes (Other)
  Sender: FDA-Public Use
  Company Number: NL-ACCORD-217338

PATIENT
  Age: 14 Year
  Sex: Female

DRUGS (3)
  1. DAUNORUBICIN [Suspect]
     Active Substance: DAUNORUBICIN
     Indication: ACUTE MEGAKARYOCYTIC LEUKAEMIA
  2. CYTARABINE/CYTARABINE HYDROCHLORIDE/CYTARABINE OCFOSFATE [Suspect]
     Active Substance: CYTARABINE
     Indication: ACUTE MEGAKARYOCYTIC LEUKAEMIA
  3. ETOPOSIDE. [Suspect]
     Active Substance: ETOPOSIDE
     Indication: ACUTE MEGAKARYOCYTIC LEUKAEMIA

REACTIONS (2)
  - Hepatic failure [Unknown]
  - Off label use [Unknown]
